FAERS Safety Report 8809723 (Version 3)
Quarter: 2013Q2

REPORT INFORMATION
  Report Type: Report from Study
  Country: JP (occurrence: JP)
  Receive Date: 20120926
  Receipt Date: 20130604
  Transmission Date: 20140414
  Serious: Yes (Hospitalization, Other)
  Sender: FDA-Public Use
  Company Number: JP-VERTEX PHARMACEUTICAL INC.-AE-2012-003273

PATIENT
  Age: 63 Year
  Sex: Male

DRUGS (22)
  1. VX-950 (TELAPREVIR) [Suspect]
     Indication: CHRONIC HEPATITIS C
     Dosage: 2250 MG, QD
     Route: 048
     Dates: start: 20120207, end: 20120307
  2. VX-950 (TELAPREVIR) [Suspect]
     Dosage: 1500 MG, QD
     Route: 048
     Dates: start: 20120308, end: 20120324
  3. VX-950 (TELAPREVIR) [Suspect]
     Dosage: 2250 MG, QD
     Route: 048
     Dates: start: 20120417, end: 20120430
  4. REBETOL [Suspect]
     Indication: CHRONIC HEPATITIS C
     Dosage: 1000 MG, QD
     Route: 048
     Dates: start: 20120207, end: 20120306
  5. REBETOL [Suspect]
     Dosage: 800 MG, QD
     Route: 048
     Dates: start: 20120307, end: 20120309
  6. REBETOL [Suspect]
     Dosage: 600 MG, QD
     Route: 048
     Dates: start: 20120310, end: 20120316
  7. REBETOL [Suspect]
     Dosage: 400 MG, QD
     Route: 048
     Dates: start: 20120317, end: 20120322
  8. REBETOL [Suspect]
     Dosage: 200 MG, QD
     Route: 048
     Dates: start: 20120323, end: 20120328
  9. REBETOL [Suspect]
     Dosage: 400 MG, QD
     Route: 048
     Dates: start: 20120329, end: 20120423
  10. REBETOL [Suspect]
     Dosage: 200 MG, QD
     Route: 048
     Dates: start: 20120424, end: 20120430
  11. REBETOL [Suspect]
     Dosage: 400 MG, QD
     Route: 048
     Dates: start: 20120501, end: 20120528
  12. REBETOL [Suspect]
     Dosage: 600 MG, QD
     Route: 048
     Dates: start: 20120529, end: 20120611
  13. REBETOL [Suspect]
     Dosage: 800 MG, QD
     Route: 048
     Dates: start: 20120612, end: 20120625
  14. REBETOL [Suspect]
     Dosage: 1000 MG,QD
     Route: 048
     Dates: start: 20120626
  15. REBETOL [Suspect]
     Dosage: 1000 MG, QD
     Route: 048
     Dates: start: 20120626
  16. CONIEL [Suspect]
     Route: 048
  17. PEGINTRON [Concomitant]
     Dosage: 1.5 ?G/KG, QW
     Route: 058
     Dates: start: 20120207
  18. PEGINTRON [Concomitant]
     Dosage: UNK
  19. SEDEKOPAN [Concomitant]
     Dosage: 1.5 MG, QD
     Route: 048
     Dates: start: 20120309
  20. SEDEKOPAN [Concomitant]
     Dosage: 2 MG,QD
     Route: 048
  21. PAXIL [Concomitant]
     Dosage: 10 MG, QD
     Route: 048
  22. FAMOTIDINE [Concomitant]
     Dosage: 20 MG, QD
     Route: 048

REACTIONS (4)
  - Renal disorder [Recovered/Resolved]
  - Decreased appetite [Recovered/Resolved]
  - Syncope [Recovered/Resolved]
  - Anaemia [Not Recovered/Not Resolved]
